FAERS Safety Report 6368108-1 (Version None)
Quarter: 2009Q3

REPORT INFORMATION
  Report Type: 
  Country: None (occurrence: None)
  Receive Date: 20090922
  Receipt Date: 20090911
  Transmission Date: 20100115
  Serious: Yes (Other)
  Sender: FDA-Public Use
  Company Number: PHHY2009BR39252

PATIENT
  Sex: Female

DRUGS (2)
  1. TRILEPTAL [Suspect]
     Indication: DEPRESSION
     Dosage: HALF TABLET BID, MORNING AND NIGHT
     Route: 048
     Dates: start: 20090908
  2. CLOXAZOLAM [Concomitant]
     Indication: DEPRESSION
     Dosage: 2 MG/1 TABLET DAILY
     Route: 048
     Dates: start: 20090601

REACTIONS (9)
  - ABDOMINAL PAIN [None]
  - COLD SWEAT [None]
  - DIARRHOEA [None]
  - DIZZINESS [None]
  - FEELING ABNORMAL [None]
  - GASTROENTERITIS [None]
  - HEADACHE [None]
  - NAUSEA [None]
  - VOMITING [None]
